FAERS Safety Report 5901200-1 (Version None)
Quarter: 2008Q3

REPORT INFORMATION
  Report Type: 
  Country: None (occurrence: None)
  Receive Date: 20080929
  Receipt Date: 20080602
  Transmission Date: 20090109
  Serious: Yes (Other)
  Sender: FDA-Public Use
  Company Number: US-BRISTOL-MYERS SQUIBB COMPANY-14212054

PATIENT
  Age: 80 Year
  Sex: Female
  Weight: 63 kg

DRUGS (1)
  1. ORENCIA [Suspect]
     Indication: RHEUMATOID ARTHRITIS
     Dosage: TAKEN ONE INFUSION.
     Dates: start: 20071111

REACTIONS (4)
  - ANAPHYLACTIC SHOCK [None]
  - CUTIS LAXA [None]
  - HEADACHE [None]
  - RASH [None]
